FAERS Safety Report 8011374-7 (Version None)
Quarter: 2011Q4

REPORT INFORMATION
  Report Type: 
  Country: None (occurrence: None)
  Receive Date: 20111123
  Receipt Date: 20110803
  Transmission Date: 20120403
  Serious: No
  Sender: FDA-Public Use
  Company Number: 333248

PATIENT
  Sex: Male

DRUGS (2)
  1. VICTOZA [Suspect]
     Indication: DIABETES MELLITUS
     Dosage: , SUBCUTANEOUS
     Route: 058
  2. MEDIPHRINE (HEPARIN SODIUM, (IODISED)) [Concomitant]

REACTIONS (2)
  - WEIGHT DECREASED [None]
  - RASH [None]
